APPROVED DRUG PRODUCT: CLOFARABINE
Active Ingredient: CLOFARABINE
Strength: 20MG/20ML (1MG/ML)
Dosage Form/Route: SOLUTION;INTRAVENOUS
Application: A212457 | Product #001
Applicant: EUGIA PHARMA SPECIALITIES LTD
Approved: Oct 3, 2022 | RLD: No | RS: No | Type: DISCN